FAERS Safety Report 4270063-5 (Version None)
Quarter: 2004Q1

REPORT INFORMATION
  Report Type: 
  Country: None (occurrence: None)
  Receive Date: 20040114
  Receipt Date: 20030131
  Transmission Date: 20041129
  Serious: No
  Sender: FDA-Public Use
  Company Number: US-GLAXOSMITHKLINE-A0395178A

PATIENT
  Age: 49 Year
  Sex: Male

DRUGS (12)
  1. WELLBUTRIN [Suspect]
     Indication: ILL-DEFINED DISORDER
     Dosage: 75MG TWICE PER DAY
     Route: 048
     Dates: end: 20030128
  2. TYLENOL W/ CODEINE NO. 4 [Concomitant]
  3. MOTRIN [Concomitant]
  4. VIREAD [Concomitant]
  5. ZIAGEN [Concomitant]
  6. KALETRA [Concomitant]
  7. PREVACID [Concomitant]
  8. VALIUM [Concomitant]
  9. ZOLOFT [Concomitant]
  10. ATENOLOL [Concomitant]
  11. IMODIUM [Concomitant]
  12. ASPIRIN [Concomitant]

REACTIONS (1)
  - DRUG INEFFECTIVE [None]
